FAERS Safety Report 5947948-4 (Version None)
Quarter: 2008Q4

REPORT INFORMATION
  Report Type: 
  Country: None (occurrence: None)
  Receive Date: 20081111
  Receipt Date: 20081003
  Transmission Date: 20090506
  Serious: No
  Sender: FDA-Public Use
  Company Number: A0750483A

PATIENT
  Age: 28 Year
  Sex: Female

DRUGS (4)
  1. TREXIMET [Suspect]
     Indication: MIGRAINE
     Dosage: 1TAB AS REQUIRED
     Route: 048
     Dates: start: 20080701
  2. LUNESTA [Concomitant]
  3. METOPROLOL TARTRATE [Concomitant]
  4. METFORMIN HYDROCHLORIDE [Concomitant]

REACTIONS (2)
  - ABDOMINAL PAIN UPPER [None]
  - MEDICATION ERROR [None]
